FAERS Safety Report 12243847 (Version 7)
Quarter: 2022Q2

REPORT INFORMATION
  Report Type: Spontaneous
  Country: US (occurrence: US)
  Receive Date: 20160406
  Receipt Date: 20220627
  Transmission Date: 20220721
  Serious: No
  Sender: FDA-Public Use
  Company Number: US-PFIZER INC-2016192156

PATIENT
  Age: 73 Year
  Sex: Female

DRUGS (1)
  1. XELJANZ [Suspect]
     Active Substance: TOFACITINIB CITRATE
     Dosage: 5 MG

REACTIONS (9)
  - Anxiety [Unknown]
  - Hypoacusis [Unknown]
  - Mental disorder [Unknown]
  - Productive cough [Unknown]
  - Seasonal allergy [Unknown]
  - Nasal congestion [Unknown]
  - Oropharyngeal pain [Unknown]
  - Eye pain [Unknown]
  - Psychomotor skills impaired [Unknown]
